FAERS Safety Report 10266179 (Version 2)
Quarter: 2014Q2

REPORT INFORMATION
  Report Type: Spontaneous
  Country: FR (occurrence: FR)
  Receive Date: 20140627
  Receipt Date: 20140627
  Transmission Date: 20141212
  Serious: Yes (Hospitalization, Other)
  Sender: FDA-Public Use
  Company Number: FR-PFIZER INC-2014169484

PATIENT
  Age: 93 Year
  Sex: Male

DRUGS (6)
  1. TAZOCILLINE [Suspect]
     Indication: URINARY TRACT INFECTION
     Dosage: 4 G, 3X/DAY
     Route: 042
     Dates: start: 20140407, end: 20140424
  2. TAZOCILLINE [Suspect]
     Indication: PROSTATITIS
     Dosage: UNK
     Route: 042
     Dates: start: 20140430, end: 20140505
  3. INVANZ [Suspect]
     Dosage: 1 G, 1X/DAY
     Route: 042
     Dates: start: 20140424, end: 20140430
  4. ROCEPHINE [Suspect]
     Dosage: UNK
     Route: 042
     Dates: start: 20140519
  5. FLAGYL ^AVENTIS^ [Suspect]
     Dosage: 500 MG, 3X/DAY
     Route: 048
     Dates: start: 20140505, end: 20140512
  6. VANCOMYCIN HYDROCHLORIDE SANDOZ [Suspect]
     Dosage: UNK
     Dates: start: 20140512

REACTIONS (5)
  - Clostridium difficile colitis [Recovered/Resolved]
  - Diarrhoea [Recovered/Resolved]
  - Confusional state [Recovered/Resolved]
  - General physical health deterioration [Unknown]
  - Renal failure acute [Unknown]
